FAERS Safety Report 5155622-X (Version None)
Quarter: 2006Q4

REPORT INFORMATION
  Report Type: 
  Country: None (occurrence: None)
  Receive Date: 20061114
  Receipt Date: 20061101
  Transmission Date: 20070319
  Serious: Yes (Other)
  Sender: FDA-Public Use
  Company Number: 2006133678

PATIENT
  Sex: Male
  Weight: 93.8946 kg

DRUGS (2)
  1. NORVASC [Suspect]
     Indication: HYPERTENSION
     Dosage: 10 MG (10 MG, EVERYDAY)/2-3YRS AGO
  2. ASPIRIN [Concomitant]

REACTIONS (3)
  - BREAST MASS [None]
  - BREAST PAIN [None]
  - BREAST SWELLING [None]
